FAERS Safety Report 13870104 (Version 1)
Quarter: 2017Q3

REPORT INFORMATION
  Report Type: Spontaneous
  Country: GB (occurrence: GB)
  Receive Date: 20170815
  Receipt Date: 20170815
  Transmission Date: 20171127
  Serious: Yes (Hospitalization, Disabling, Other)
  Sender: FDA-Public Use
  Company Number: GB-MYLANLABS-2017M1048840

PATIENT

DRUGS (7)
  1. QUETIAPINE. [Concomitant]
     Active Substance: QUETIAPINE
     Indication: PRODUCT USED FOR UNKNOWN INDICATION
  2. DIAZEPAM. [Concomitant]
     Active Substance: DIAZEPAM
     Indication: PRODUCT USED FOR UNKNOWN INDICATION
  3. PAROXETINE. [Suspect]
     Active Substance: PAROXETINE
     Dosage: 15 MG, UNK
     Route: 048
     Dates: start: 20160926, end: 20161002
  4. LAMOTRIGINE. [Concomitant]
     Active Substance: LAMOTRIGINE
     Indication: PRODUCT USED FOR UNKNOWN INDICATION
  5. PROGESTERONE. [Interacting]
     Active Substance: PROGESTERONE
     Indication: PRODUCT USED FOR UNKNOWN INDICATION
     Dosage: NOT KNOWN
     Route: 048
     Dates: start: 20160301, end: 20161112
  6. PAROXETINE. [Suspect]
     Active Substance: PAROXETINE
     Indication: DEPRESSION SUICIDAL
     Dosage: 10 MG, UNK
     Route: 048
     Dates: start: 20160813, end: 20160925
  7. PAROXETINE. [Suspect]
     Active Substance: PAROXETINE
     Dosage: 20 MG, UNK
     Route: 048
     Dates: start: 20161003, end: 20170103

REACTIONS (10)
  - Psychotic disorder [Not Recovered/Not Resolved]
  - Fatigue [Unknown]
  - Brain injury [Unknown]
  - Mania [Not Recovered/Not Resolved]
  - Hallucination [Unknown]
  - Drug interaction [Unknown]
  - Personality change [Unknown]
  - Tachyphrenia [Unknown]
  - Depression [Recovered/Resolved]
  - Confusional state [Unknown]

NARRATIVE: CASE EVENT DATE: 20160701
